FAERS Safety Report 5628785-7 (Version None)
Quarter: 2008Q1

REPORT INFORMATION
  Report Type: 
  Country: None (occurrence: None)
  Receive Date: 20080215
  Receipt Date: 20080212
  Transmission Date: 20080703
  Serious: Yes (Hospitalization)
  Sender: FDA-Public Use
  Company Number: US-GILEAD-2008-0015338

PATIENT
  Sex: Female
  Weight: 81.72 kg

DRUGS (9)
  1. LETAIRIS [Suspect]
     Indication: PULMONARY HYPERTENSION
     Route: 048
     Dates: start: 20080123
  2. LASIX [Concomitant]
     Route: 048
  3. OXYGEN [Concomitant]
     Route: 055
  4. SPIRIVA [Concomitant]
     Route: 048
  5. PROCARDIA XL [Concomitant]
     Route: 048
  6. HYDRALAZINE HCL [Concomitant]
     Route: 048
  7. PLAVIX [Concomitant]
     Route: 048
  8. PRAVASTATIN [Concomitant]
     Route: 048
  9. LEXAPRO [Concomitant]
     Route: 048

REACTIONS (5)
  - ABDOMINAL PAIN UPPER [None]
  - CONSTIPATION [None]
  - DIARRHOEA [None]
  - DYSPNOEA [None]
  - FLUSHING [None]
